FAERS Safety Report 6979464-5 (Version None)
Quarter: 2010Q3

REPORT INFORMATION
  Report Type: 
  Country: None (occurrence: None)
  Receive Date: 20100913
  Receipt Date: 20100902
  Transmission Date: 20110219
  Serious: Yes (Hospitalization)
  Sender: FDA-Public Use
  Company Number: AR-AMGEN-QUU437116

PATIENT
  Sex: Female
  Weight: 51 kg

DRUGS (8)
  1. ENBREL [Suspect]
     Indication: RHEUMATOID ARTHRITIS
     Dosage: UNSPECIFIED
     Route: 058
     Dates: start: 20060101, end: 20100720
  2. ENBREL [Suspect]
     Route: 058
     Dates: start: 20100720
  3. DICLOFENAC [Suspect]
     Indication: PRODUCT USED FOR UNKNOWN INDICATION
     Route: 048
     Dates: start: 20060101
  4. METHYLPREDNISOLONE [Concomitant]
     Indication: PAIN
     Dosage: 8/MG/TABLETS
  5. METHOTREXATE [Concomitant]
     Indication: RHEUMATOID ARTHRITIS
     Route: 048
     Dates: start: 20060101, end: 20100720
  6. METHOTREXATE [Concomitant]
     Route: 048
     Dates: start: 20100720
  7. KETOROLAC TROMETHAMINE [Concomitant]
     Indication: PAIN
     Route: 060
  8. OMEPRAZOLE [Concomitant]
     Indication: GASTRIC DISORDER
     Route: 048

REACTIONS (3)
  - GASTRIC HAEMORRHAGE [None]
  - GASTRIC MUCOSAL LESION [None]
  - GASTRIC ULCER [None]
